FAERS Safety Report 9747205 (Version 1)
Quarter: 2013Q4

REPORT INFORMATION
  Report Type: Spontaneous
  Country: US (occurrence: US)
  Receive Date: 20131212
  Receipt Date: 20131212
  Transmission Date: 20140711
  Serious: Yes (Hospitalization)
  Sender: FDA-Public Use
  Company Number: US-ROCHE-1317044

PATIENT
  Sex: Male

DRUGS (3)
  1. PEGASYS [Suspect]
     Indication: HEPATITIS C
     Route: 065
  2. INCIVEK [Suspect]
     Indication: HEPATITIS C
     Route: 065
  3. COPEGUS [Concomitant]
     Indication: HEPATITIS C
     Route: 065

REACTIONS (7)
  - Intestinal perforation [Recovered/Resolved]
  - Pyrexia [Recovered/Resolved]
  - Crying [Recovered/Resolved]
  - Pain [Recovered/Resolved]
  - Influenza like illness [Recovered/Resolved]
  - Haemorrhoids [Recovered/Resolved]
  - Malaise [Recovered/Resolved]
